FAERS Safety Report 15467730 (Version 1)
Quarter: 2018Q4

REPORT INFORMATION
  Report Type: Spontaneous
  Country: US (occurrence: US)
  Receive Date: 20181005
  Receipt Date: 20181005
  Transmission Date: 20190204
  Serious: Yes (Other)
  Sender: FDA-Public Use
  Company Number: US-LUPIN PHARMACEUTICALS INC.-2018-06805

PATIENT
  Age: 61 Year
  Sex: Female

DRUGS (1)
  1. HYDROXYCHLOROQUINE [Suspect]
     Active Substance: HYDROXYCHLOROQUINE
     Indication: SYSTEMIC LUPUS ERYTHEMATOSUS
     Dosage: 400 MG, QD (DAILY DOSING BASED ON ACTUAL BODY WEIGHT WAS 5.4 MG/KG/DAY)
     Route: 065

REACTIONS (1)
  - Retinal pigment epitheliopathy [Unknown]
